FAERS Safety Report 4303994-8 (Version None)
Quarter: 2004Q1

REPORT INFORMATION
  Report Type: 
  Country: None (occurrence: None)
  Receive Date: 20040225
  Receipt Date: 20040213
  Transmission Date: 20041129
  Serious: Yes (Other)
  Sender: FDA-Public Use
  Company Number: DE-BRISTOL-MYERS SQUIBB COMPANY-12508354

PATIENT
  Sex: Male

DRUGS (2)
  1. CARBOPLATIN [Suspect]
     Indication: BRAIN NEOPLASM MALIGNANT
     Route: 042
     Dates: start: 20030101, end: 20030101
  2. VEPESID [Suspect]
     Indication: BRAIN NEOPLASM MALIGNANT
     Dates: start: 20030101, end: 20030101

REACTIONS (1)
  - NERVOUS SYSTEM DISORDER [None]
